FAERS Safety Report 6471407-6 (Version None)
Quarter: 2009Q4

REPORT INFORMATION
  Report Type: 
  Country: None (occurrence: None)
  Receive Date: 20091203
  Receipt Date: 20080325
  Transmission Date: 20100525
  Serious: Yes (Death, Other)
  Sender: FDA-Public Use
  Company Number: US-ELI_LILLY_AND_COMPANY-US200802005407

PATIENT
  Age: 27 Year
  Sex: Male

DRUGS (3)
  1. PROZAC [Suspect]
     Indication: ANXIETY
     Dosage: UNK, UNK
     Dates: end: 20080124
  2. XANAX [Concomitant]
     Indication: ANXIETY
  3. AMBIEN [Concomitant]

REACTIONS (8)
  - COMPLETED SUICIDE [None]
  - FEELING ABNORMAL [None]
  - GUN SHOT WOUND [None]
  - HOMICIDE [None]
  - INSOMNIA [None]
  - IRRITABILITY [None]
  - LAZINESS [None]
  - STRESS [None]
